FAERS Safety Report 20151065 (Version 1)
Quarter: 2021Q4

REPORT INFORMATION
  Report Type: Spontaneous
  Country: CH (occurrence: CH)
  Receive Date: 20211206
  Receipt Date: 20211206
  Transmission Date: 20220303
  Serious: Yes (Hospitalization, Other)
  Sender: FDA-Public Use
  Company Number: CH-NOVARTISPH-NVSC2021CH277136

PATIENT
  Sex: Male
  Weight: 80 kg

DRUGS (5)
  1. COSENTYX [Suspect]
     Active Substance: SECUKINUMAB
     Indication: Psoriasis
     Dosage: 300 MG
     Route: 058
     Dates: start: 201610
  2. JANUMET [Concomitant]
     Active Substance: METFORMIN HYDROCHLORIDE\SITAGLIPTIN PHOSPHATE
     Indication: Product used for unknown indication
     Dosage: UNK
     Route: 065
  3. LISINOPRIL [Concomitant]
     Active Substance: LISINOPRIL
     Indication: Product used for unknown indication
     Dosage: 10 MG
     Route: 065
  4. PREDNISONE [Concomitant]
     Active Substance: PREDNISONE
     Indication: Product used for unknown indication
     Dosage: 100 MG, TID
     Route: 065
     Dates: start: 20210705, end: 20210712
  5. PANTOZOL [Concomitant]
     Active Substance: PANTOPRAZOLE SODIUM
     Indication: Product used for unknown indication
     Dosage: 40 MG
     Route: 065
     Dates: start: 20210705, end: 20210712

REACTIONS (8)
  - Hyperglycaemia [Recovered/Resolved]
  - Facial paralysis [Recovering/Resolving]
  - Facial pain [Recovering/Resolving]
  - Lipase increased [Unknown]
  - Hypertriglyceridaemia [Unknown]
  - Glycosuria [Unknown]
  - Haematuria [Unknown]
  - Ketonuria [Unknown]

NARRATIVE: CASE EVENT DATE: 20210720
